FAERS Safety Report 7296469-8 (Version None)
Quarter: 2011Q1

REPORT INFORMATION
  Report Type: 
  Country: None (occurrence: None)
  Receive Date: 20110216
  Receipt Date: 20110128
  Transmission Date: 20110831
  Serious: No
  Sender: FDA-Public Use
  Company Number: US-ROCHE-758532

PATIENT
  Age: 33 Year
  Sex: Male

DRUGS (1)
  1. TAMIFLU [Suspect]
     Route: 048
     Dates: start: 20110127

REACTIONS (3)
  - PRODUCT EXPIRATION DATE ISSUE [None]
  - NO ADVERSE EVENT [None]
  - MEDICATION ERROR [None]
